FAERS Safety Report 5630115-1 (Version None)
Quarter: 2008Q1

REPORT INFORMATION
  Report Type: 
  Country: None (occurrence: None)
  Receive Date: 20080218
  Receipt Date: 20080207
  Transmission Date: 20080703
  Serious: Yes (Death, Other)
  Sender: FDA-Public Use
  Company Number: PHBS2008DE01939

PATIENT
  Age: 53 Year
  Sex: Female

DRUGS (4)
  1. CORTICOSTEROIDS [Concomitant]
     Indication: HEART TRANSPLANT
  2. MELPHALAN [Suspect]
     Indication: BONE MARROW TRANSPLANT
  3. CYCLOSPORINE [Suspect]
     Indication: HEART TRANSPLANT
     Route: 065
  4. MYCOPHENOLATE MOFETIL [Suspect]
     Indication: HEART TRANSPLANT
     Route: 065

REACTIONS (11)
  - AMYLOIDOSIS [None]
  - AUTOLOGOUS BONE MARROW TRANSPLANTATION THERAPY [None]
  - CACHEXIA [None]
  - CONCOMITANT DISEASE AGGRAVATED [None]
  - GENERAL PHYSICAL HEALTH DETERIORATION [None]
  - LYMPHADENECTOMY [None]
  - LYMPHADENOPATHY [None]
  - METASTATIC MALIGNANT MELANOMA [None]
  - MOLE EXCISION [None]
  - SKIN NEOPLASM EXCISION [None]
  - SKIN PAPILLOMA [None]
